FAERS Safety Report 15300893 (Version 1)
Quarter: 2018Q3

REPORT INFORMATION
  Report Type: Spontaneous
  Country: US (occurrence: US)
  Receive Date: 20180821
  Receipt Date: 20180821
  Transmission Date: 20181010
  Serious: No
  Sender: FDA-Public Use
  Company Number: US-TEVA-805601ACC

PATIENT
  Sex: Male

DRUGS (1)
  1. CLINDAMYCIN. [Suspect]
     Active Substance: CLINDAMYCIN
     Indication: PHARYNGITIS STREPTOCOCCAL
     Dates: start: 20170906

REACTIONS (1)
  - Dysphagia [Unknown]

NARRATIVE: CASE EVENT DATE: 20170906
